FAERS Safety Report 4968818-4 (Version None)
Quarter: 2006Q2

REPORT INFORMATION
  Report Type: 
  Country: None (occurrence: None)
  Receive Date: 20060411
  Receipt Date: 20060403
  Transmission Date: 20061013
  Serious: Yes (Other)
  Sender: FDA-Public Use
  Company Number: FR-GLAXOSMITHKLINE-B0419333A

PATIENT
  Age: 47 Year
  Sex: Female

DRUGS (4)
  1. SERETIDE [Suspect]
     Indication: ASTHMA
     Dosage: 1PUFF TWICE PER DAY
     Route: 055
  2. PARLODEL [Concomitant]
     Route: 048
     Dates: start: 19910101
  3. LUTERAN [Concomitant]
     Dosage: 5MG UNKNOWN
     Route: 048
  4. CETIRIZINE HCL [Concomitant]
     Dosage: 5MG PER DAY
     Route: 048
     Dates: start: 20050401

REACTIONS (2)
  - CATARACT [None]
  - VISION BLURRED [None]
